FAERS Safety Report 13661042 (Version 1)
Quarter: 2017Q2

REPORT INFORMATION
  Report Type: Spontaneous
  Country: CA (occurrence: CA)
  Receive Date: 20170616
  Receipt Date: 20170616
  Transmission Date: 20170830
  Serious: Yes (Other)
  Sender: FDA-Public Use
  Company Number: CA-BAXTER-2017BAX023815

PATIENT
  Sex: Male

DRUGS (1)
  1. PROCYTOX (CYCLOPHOSPHAMIDE) 2000MG/VIAL [Suspect]
     Active Substance: CYCLOPHOSPHAMIDE
     Indication: PRODUCT USED FOR UNKNOWN INDICATION
     Dosage: TOOK IT FOR 6 YEARS
     Route: 065

REACTIONS (8)
  - Metastases to bladder [Unknown]
  - Bladder cancer [Unknown]
  - Calculus urinary [Unknown]
  - Haematuria [Unknown]
  - Calculus bladder [Unknown]
  - Pollakiuria [Unknown]
  - Urinary tract infection [Unknown]
  - Dysuria [Unknown]
